FAERS Safety Report 5422115-1 (Version None)
Quarter: 2007Q3

REPORT INFORMATION
  Report Type: 
  Country: None (occurrence: None)
  Receive Date: 20070822
  Receipt Date: 20070817
  Transmission Date: 20080115
  Serious: Yes (Other)
  Sender: FDA-Public Use
  Company Number: US-JNJFOC-20070800152

PATIENT
  Sex: Female

DRUGS (3)
  1. LEVAQUIN [Suspect]
     Indication: PNEUMONIA
     Route: 048
  2. TRAZODONE HCL [Concomitant]
     Route: 065
  3. ESTRACE [Concomitant]
     Indication: HORMONE REPLACEMENT THERAPY
     Route: 061

REACTIONS (6)
  - AGITATION [None]
  - CONFUSIONAL STATE [None]
  - FACIAL PALSY [None]
  - HEADACHE [None]
  - MUSCLE TIGHTNESS [None]
  - MUSCULOSKELETAL STIFFNESS [None]
